FAERS Safety Report 6393293-5 (Version None)
Quarter: 2009Q4

REPORT INFORMATION
  Report Type: 
  Country: None (occurrence: None)
  Receive Date: 20091008
  Receipt Date: 20090924
  Transmission Date: 20100525
  Serious: Yes (Hospitalization)
  Sender: FDA-Public Use
  Company Number: PHEH2009US11618

PATIENT
  Sex: Male

DRUGS (11)
  1. EXJADE [Suspect]
     Indication: IRON OVERLOAD
     Dosage: 2000 MG DAILY
     Route: 048
     Dates: start: 20090829, end: 20090922
  2. ASCORBIC ACID [Concomitant]
     Dosage: UNK, UNK
     Route: 065
  3. ASPIRIN [Concomitant]
     Dosage: UNK, UNK
     Route: 065
  4. NEURONTIN [Concomitant]
     Dosage: UNK, UNK
     Route: 065
  5. MUCINEX [Concomitant]
     Dosage: UNK, UNK
     Route: 065
  6. NICODERM [Concomitant]
     Dosage: UNK, UNK
     Route: 065
  7. POTASSIUM CHLORIDE [Concomitant]
     Dosage: UNK, UNK
     Route: 065
  8. PRILOSEC [Concomitant]
     Dosage: UNK, UNK
     Route: 065
  9. PREDNISONE TAB [Concomitant]
     Dosage: UNK, UNK
     Route: 065
  10. VITAMIN E [Concomitant]
     Dosage: UNK, UNK
     Route: 065
  11. CALCITRIOL [Concomitant]
     Dosage: UNK, UNK
     Route: 065

REACTIONS (3)
  - INCISIONAL DRAINAGE [None]
  - INFECTION [None]
  - TENDERNESS [None]
